FAERS Safety Report 5572828-6 (Version None)
Quarter: 2007Q4

REPORT INFORMATION
  Report Type: 
  Country: None (occurrence: None)
  Receive Date: 20071223
  Receipt Date: 20071218
  Transmission Date: 20080405
  Serious: Yes (Death, Hospitalization)
  Sender: FDA-Public Use
  Company Number: PHBS2007JP20830

PATIENT
  Age: 47 Year
  Sex: Female

DRUGS (2)
  1. PREDNISOLONE [Concomitant]
     Indication: POLYMYOSITIS
     Route: 048
  2. CYCLOSPORINE [Suspect]
     Indication: POLYMYOSITIS
     Route: 042

REACTIONS (12)
  - CEREBRAL HAEMORRHAGE [None]
  - GASTROINTESTINAL HYPOMOTILITY [None]
  - HAEMODIALYSIS [None]
  - HAEMOLYTIC ANAEMIA [None]
  - OLIGURIA [None]
  - ORAL INTAKE REDUCED [None]
  - PYREXIA [None]
  - RED BLOOD CELL ABNORMALITY [None]
  - RENAL FAILURE [None]
  - RENAL IMPAIRMENT [None]
  - THROMBOCYTOPENIA [None]
  - THROMBOTIC THROMBOCYTOPENIC PURPURA [None]
